FAERS Safety Report 24969371 (Version 2)
Quarter: 2025Q1

REPORT INFORMATION
  Report Type: Spontaneous
  Country: AU (occurrence: AU)
  Receive Date: 20250214
  Receipt Date: 20250325
  Transmission Date: 20250409
  Serious: Yes (Life-Threatening)
  Sender: ROCHE
  Company Number: AU-002147023-NVSC2025AU023758

PATIENT
  Sex: Female

DRUGS (1)
  1. XOLAIR [Suspect]
     Active Substance: OMALIZUMAB
     Indication: Product used for unknown indication
     Route: 065
     Dates: start: 20250115

REACTIONS (6)
  - Toxicity to various agents [Unknown]
  - Headache [Unknown]
  - Hyperhidrosis [Unknown]
  - Swelling face [Unknown]
  - Thyroid mass [Unknown]
  - Illness [Unknown]
